FAERS Safety Report 22347645 (Version 8)
Quarter: 2023Q4

REPORT INFORMATION
  Report Type: Other
  Country: CA (occurrence: None)
  Receive Date: 20230522
  Receipt Date: 20231211
  Transmission Date: 20240110
  Serious: Yes (Other)
  Sender: FDA-Public Use
  Company Number: CA-ROCHE-3352921

PATIENT
  Age: 60 Year
  Sex: Male

DRUGS (9)
  1. OCREVUS [Suspect]
     Active Substance: OCRELIZUMAB
     Indication: Relapsing-remitting multiple sclerosis
     Dosage: 300 MG AT DAY 0 AND 14, THEN 600 MG EVERY 6 MONTH
     Route: 042
     Dates: start: 20220615
  2. PREGABALIN [Concomitant]
     Active Substance: PREGABALIN
     Dosage: NOW TAKING IT 6X/DAY INSTEAD OF 2X/DAY
  3. BACLOFEN [Concomitant]
     Active Substance: BACLOFEN
     Dosage: NOW TAKING IT AT 4X/DAY INSTEAD OF 3X/DAY
  4. AMANTADINE [Concomitant]
     Active Substance: AMANTADINE
  5. DALFAMPRIDINE [Concomitant]
     Active Substance: DALFAMPRIDINE
  6. MYRBETRIQ [Concomitant]
     Active Substance: MIRABEGRON
  7. OMEGA 3 [Concomitant]
     Active Substance: CAPSAICIN
  8. MAGNESIUM [Concomitant]
     Active Substance: MAGNESIUM
  9. CIALIS [Concomitant]
     Active Substance: TADALAFIL

REACTIONS (2)
  - Multiple sclerosis [Not Recovered/Not Resolved]
  - COVID-19 [Unknown]

NARRATIVE: CASE EVENT DATE: 20221101
